FAERS Safety Report 7444256-X (Version None)
Quarter: 2011Q2

REPORT INFORMATION
  Report Type: 
  Country: None (occurrence: None)
  Receive Date: 20110429
  Receipt Date: 20110418
  Transmission Date: 20111010
  Serious: No
  Sender: FDA-Public Use
  Company Number: US-JNJFOC-20110408859

PATIENT
  Sex: Female
  Weight: 57.61 kg

DRUGS (1)
  1. DURAGESIC-50 [Suspect]
     Indication: FIBROMYALGIA
     Route: 062

REACTIONS (2)
  - INCORRECT DRUG ADMINISTRATION RATE [None]
  - MALAISE [None]
